FAERS Safety Report 7573165-0 (Version None)
Quarter: 2011Q2

REPORT INFORMATION
  Report Type: 
  Country: None (occurrence: None)
  Receive Date: 20110627
  Receipt Date: 20110616
  Transmission Date: 20111010
  Serious: Yes (Other)
  Sender: FDA-Public Use
  Company Number: FR-JNJFOC-20110608766

PATIENT
  Age: 63 Year
  Sex: Male
  Weight: 106 kg

DRUGS (3)
  1. RISPERDAL [Suspect]
     Route: 048
     Dates: start: 20110529
  2. RISPERDAL [Suspect]
     Indication: PRODUCT USED FOR UNKNOWN INDICATION
     Route: 048
  3. RISPERDAL [Suspect]
     Route: 048

REACTIONS (4)
  - MEDICATION ERROR [None]
  - DRUG DISPENSING ERROR [None]
  - NO ADVERSE EVENT [None]
  - INCORRECT DOSE ADMINISTERED [None]
